FAERS Safety Report 21390496 (Version 1)
Quarter: 2022Q3

REPORT INFORMATION
  Report Type: Spontaneous
  Country: DE (occurrence: DE)
  Receive Date: 20220929
  Receipt Date: 20220929
  Transmission Date: 20221027
  Serious: Yes (Hospitalization, Other)
  Sender: FDA-Public Use
  Company Number: DE-ADRED-08159-01

PATIENT
  Age: 71 Year
  Sex: Male
  Weight: 85 kg

DRUGS (12)
  1. BISOPROLOL [Suspect]
     Active Substance: BISOPROLOL
     Indication: Product used for unknown indication
     Dosage: 2.5 MILLIGRAM, 2.5 MG, 1-0-1-0, TABLETS(2.5 MG, 1-0-1-0, TABLETTEN)
     Route: 048
  2. MINOXIDIL [Suspect]
     Active Substance: MINOXIDIL
     Indication: Product used for unknown indication
     Dosage: 2.5 MILLIGRAM, 2.5 MG, 1-0-1-0, TABLETS(2.5 MG, 1-0-1-0, TABLETTEN)
     Route: 048
  3. CLOPIDOGREL [Concomitant]
     Active Substance: CLOPIDOGREL BISULFATE
     Indication: Product used for unknown indication
     Dosage: 75 MILLIGRAM, 75 MG, 0-1-0-0, TABLETS(75 MG, 0-1-0-0, TABLETTEN)
     Route: 048
  4. IPRATROPIUMBROMID/SALBUTAMOL CIPLA [Concomitant]
     Indication: Product used for unknown indication
     Dosage: UNK,0.5-2.5 MG, 1-1-1-0, AMPOULES(0.5-2.5 MG, 1-1-1-0, AMPULLEN)
  5. INSULIN DETEMIR [Concomitant]
     Active Substance: INSULIN DETEMIR
     Indication: Product used for unknown indication
     Dosage: UNK,300 IU/3ML, NK, PRE-FILLED SYRINGES(300 IE/3ML, NK, FERTIGSPRITZEN)
     Route: 058
  6. RAMIPRIL [Concomitant]
     Active Substance: RAMIPRIL
     Indication: Product used for unknown indication
     Dosage: 5 MILLIGRAM,5 MG, 1-0-1-0, TABLETS(~5 MG, 1-0-1-0, TABLETTEN  )
     Route: 048
  7. INSULIN HUMAN [Concomitant]
     Active Substance: INSULIN HUMAN
     Indication: Product used for unknown indication
     Dosage: UNK,300 IU/3ML, 10-8-8-0, PRE-FILLED SYRINGES(~300 IE/3ML, 10-8-8-0, FERTIGSPRITZEN  )
     Route: 058
  8. DOXAZOSIN [Concomitant]
     Active Substance: DOXAZOSIN MESYLATE
     Indication: Product used for unknown indication
     Dosage: UNK,4 MG, 2-0-0-0, PROLONGED-RELEASE TABLETS(4 MG, 2-0-0-0, RETARD-TABLETTEN)
     Route: 048
  9. TORSEMIDE [Concomitant]
     Active Substance: TORSEMIDE
     Indication: Product used for unknown indication
     Dosage: UNK,5 MG, 1-0-0-0, TABLETS(5 MG, 1-0-0-0, TABLETTEN)
     Route: 048
  10. LERCANIDIPINE [Concomitant]
     Active Substance: LERCANIDIPINE
     Indication: Product used for unknown indication
     Dosage: UNK,10 MG, 1-0-1-0, TABLETS(10 MG, 1-0-1-0, TABLETTEN)
     Route: 048
  11. ASPIRIN [Concomitant]
     Active Substance: ASPIRIN
     Indication: Product used for unknown indication
     Dosage: UNK, 100MG, 0-1-0-0, TABLETS(100 MG, 0-1-0-0, TABLETTEN)
     Route: 048
  12. SIMVASTATIN [Concomitant]
     Active Substance: SIMVASTATIN
     Indication: Product used for unknown indication
     Dosage: UNK, 40 MG, 0-0-1-0, TABLETS(40 MG, 0-0-1-0, TABLETTEN)
     Route: 048

REACTIONS (3)
  - Dyspnoea exertional [Unknown]
  - Atrioventricular block complete [Unknown]
  - Oedema peripheral [Unknown]
